FAERS Safety Report 6124844-3 (Version None)
Quarter: 2009Q1

REPORT INFORMATION
  Report Type: 
  Country: None (occurrence: None)
  Receive Date: 20090319
  Receipt Date: 20090306
  Transmission Date: 20090719
  Serious: Yes (Other)
  Sender: FDA-Public Use
  Company Number: US-PFIZER INC-2009180188

PATIENT

DRUGS (1)
  1. NEURONTIN [Suspect]

REACTIONS (1)
  - GASTRIC BYPASS [None]
